FAERS Safety Report 6920814-3 (Version None)
Quarter: 2010Q3

REPORT INFORMATION
  Report Type: 
  Country: None (occurrence: None)
  Receive Date: 20100812
  Receipt Date: 20100803
  Transmission Date: 20110219
  Serious: Yes (Hospitalization)
  Sender: FDA-Public Use
  Company Number: FR-ASTRAZENECA-2010SE36870

PATIENT
  Age: 27050 Day
  Sex: Female

DRUGS (11)
  1. NEXIUM [Suspect]
     Route: 048
  2. METOJECT [Suspect]
     Route: 058
     Dates: start: 20080901
  3. MABTHERA [Suspect]
     Route: 042
     Dates: start: 20091201, end: 20091201
  4. ZELITREX [Suspect]
     Route: 048
     Dates: start: 20100601, end: 20100601
  5. SKENAN [Suspect]
     Dosage: 120 MG, 60 MG TWICE DAILY
     Route: 048
  6. MORPHINE [Suspect]
     Route: 048
  7. CORTANCYL [Suspect]
     Route: 048
  8. LASIX [Suspect]
     Route: 048
  9. TRAMADOL HCL [Suspect]
     Route: 048
  10. PREVISCAN [Suspect]
     Route: 048
  11. ACTONEL [Suspect]
     Route: 048

REACTIONS (1)
  - INTERSTITIAL LUNG DISEASE [None]
